FAERS Safety Report 23562186 (Version 1)
Quarter: 2024Q1

REPORT INFORMATION
  Report Type: Spontaneous
  Country: GB (occurrence: GB)
  Receive Date: 20240226
  Receipt Date: 20240226
  Transmission Date: 20240410
  Serious: Yes (Other)
  Sender: FDA-Public Use
  Company Number: GB-BESINS-2023-26550

PATIENT
  Age: 58 Year
  Sex: Female
  Weight: 75 kg

DRUGS (7)
  1. ESTRADIOL [Suspect]
     Active Substance: ESTRADIOL
     Indication: Menopause
     Dosage: UNK (BLUE LID/ USE 3 PUMPS DAILY TO SKIN OF ARM AND WRIST TO SHOULDER)(0.06 %)
     Dates: start: 20231219, end: 2023
  2. ESTRADIOL [Suspect]
     Active Substance: ESTRADIOL
     Dosage: UNK (WHITE LID)
  3. PROGESTERONE [Suspect]
     Active Substance: PROGESTERONE
     Indication: Menopausal symptoms
     Dosage: UNK (ONE TO BE TAKEN AT NIGHT)
     Dates: start: 20230221, end: 20231128
  4. VAGIFEM [Suspect]
     Active Substance: ESTRADIOL
     Indication: Product used for unknown indication
     Dosage: UNK (USE EVERY NIGHT FOR 2 WEEKS AND THEN JUST TWICE WEEKLY ON ONGOING BASIS)
     Dates: start: 20230221, end: 20231128
  5. CLOBETASOL [Concomitant]
     Active Substance: CLOBETASOL
     Indication: Product used for unknown indication
     Dosage: UNK (APPLY THINLY TWICE WEEKLY OR AS NEEDED AS DIRECTED BY THE GYNECOLOGIST)
     Dates: start: 20230221, end: 20231128
  6. LOSARTAN [Concomitant]
     Active Substance: LOSARTAN
     Indication: Essential hypertension
     Dosage: UNK (TAKE ONE DAILY)
     Dates: start: 20231212
  7. SIMVASTATIN [Concomitant]
     Active Substance: SIMVASTATIN
     Indication: Blood cholesterol
     Dosage: UNK (ONE TO BE TAKEN AT NIGHT)
     Dates: start: 20231212

REACTIONS (4)
  - Abdominal distension [Unknown]
  - Intermenstrual bleeding [Unknown]
  - Dysmenorrhoea [Unknown]
  - Abdominal pain [Unknown]

NARRATIVE: CASE EVENT DATE: 20230627
